FAERS Safety Report 5015648-3 (Version None)
Quarter: 2006Q2

REPORT INFORMATION
  Report Type: 
  Country: None (occurrence: None)
  Receive Date: 20060601
  Receipt Date: 20060525
  Transmission Date: 20061013
  Serious: Yes (Life-Threatening, Hospitalization, Disabling, Other)
  Sender: FDA-Public Use
  Company Number: US-GLAXOSMITHKLINE-A0606937A

PATIENT
  Age: 49 Year
  Sex: Female

DRUGS (2)
  1. PAXIL [Suspect]
     Indication: DEPRESSION
     Dosage: 20MG PER DAY
     Route: 048
  2. BIRTH CONTROL [Concomitant]

REACTIONS (16)
  - ABDOMINAL PAIN [None]
  - APHASIA [None]
  - BASILAR ARTERY OCCLUSION [None]
  - BLOOD PRESSURE DECREASED [None]
  - CONVULSION [None]
  - DIARRHOEA [None]
  - DYSKINESIA [None]
  - FACIAL PALSY [None]
  - HEART RATE DECREASED [None]
  - HYPOAESTHESIA [None]
  - INFLUENZA [None]
  - LOCKED-IN SYNDROME [None]
  - MIOSIS [None]
  - NAUSEA [None]
  - TREMOR [None]
  - VOMITING [None]
